FAERS Safety Report 23187133 (Version 2)
Quarter: 2023Q4

REPORT INFORMATION
  Report Type: Spontaneous
  Country: RO (occurrence: RO)
  Receive Date: 20231115
  Receipt Date: 20231121
  Transmission Date: 20240109
  Serious: Yes (Hospitalization, Other)
  Sender: FDA-Public Use
  Company Number: RO-ABBVIE-5490972

PATIENT
  Age: 86 Year
  Sex: Male

DRUGS (8)
  1. VENETOCLAX [Suspect]
     Active Substance: VENETOCLAX
     Indication: Product used for unknown indication
     Dosage: DURING CYCLE TYPE: 7 DAYS DOSE OF 4/DAY
     Route: 048
     Dates: start: 202305, end: 202310
  2. VENETOCLAX [Suspect]
     Active Substance: VENETOCLAX
     Indication: Product used for unknown indication
     Dosage: 4TBX2 /WEEK:/3S= 6 DAYS
     Route: 048
     Dates: start: 202205, end: 20230410
  3. VENETOCLAX [Suspect]
     Active Substance: VENETOCLAX
     Indication: Product used for unknown indication
     Dosage: 4TB/DAY ONLY 13D OF THE 28-DAY CYCLE
     Route: 048
  4. FILGRASTIM [Concomitant]
     Active Substance: FILGRASTIM
     Indication: Product used for unknown indication
     Dates: start: 202305
  5. CIPROFLOXACIN [Concomitant]
     Active Substance: CIPROFLOXACIN
     Indication: Product used for unknown indication
  6. AZACITIDINE [Concomitant]
     Active Substance: AZACITIDINE
     Indication: Product used for unknown indication
  7. FLUCONAZOLE [Concomitant]
     Active Substance: FLUCONAZOLE
     Indication: Product used for unknown indication
  8. CEFTAZIDIME [Concomitant]
     Active Substance: CEFTAZIDIME
     Indication: Product used for unknown indication

REACTIONS (33)
  - Systemic inflammatory response syndrome [Unknown]
  - Orthostatic intolerance [Unknown]
  - Pyrexia [Unknown]
  - Laboratory test abnormal [Unknown]
  - Neutropenia [Unknown]
  - Sputum abnormal [Unknown]
  - Ear, nose and throat examination abnormal [Unknown]
  - Computerised tomogram abnormal [Unknown]
  - Hypotension [Unknown]
  - Systemic inflammatory response syndrome [Unknown]
  - Urine analysis abnormal [Unknown]
  - Oedematous pancreatitis [Unknown]
  - Tachycardia [Unknown]
  - Nausea [Unknown]
  - Gastrointestinal disorder [Unknown]
  - Altered state of consciousness [Unknown]
  - Pancreatic abscess [Unknown]
  - Viral infection [Unknown]
  - Abnormal faeces [Unknown]
  - Chills [Unknown]
  - Sputum culture positive [Unknown]
  - Pneumococcal sepsis [Unknown]
  - Sputum culture positive [Unknown]
  - Pyrexia [Unknown]
  - Mitral valve incompetence [Unknown]
  - Tricuspid valve incompetence [Unknown]
  - Amylase increased [Unknown]
  - Lipase increased [Unknown]
  - Superinfection [Unknown]
  - Staphylococcal infection [Unknown]
  - Candida infection [Unknown]
  - Dysplasia [Unknown]
  - Acute myeloid leukaemia [Unknown]

NARRATIVE: CASE EVENT DATE: 20220101
